FAERS Safety Report 8391506-1 (Version None)
Quarter: 2012Q2

REPORT INFORMATION
  Report Type: 
  Country: None (occurrence: None)
  Receive Date: 20120515
  Receipt Date: 20120507
  Transmission Date: 20120825
  Serious: Yes (Death)
  Sender: FDA-Public Use
  Company Number: WAES 1205USA00922

PATIENT
  Age: 61 Year
  Sex: Female

DRUGS (2)
  1. ZOLINZA [Suspect]
     Indication: THROMBOCYTOPENIA
     Dosage: 200 MG/PO
     Route: 048
     Dates: start: 20101116, end: 20120430
  2. ASCAL (ASPIRIN CALCIUM [Concomitant]

REACTIONS (1)
  - SUDDEN DEATH [None]
